FAERS Safety Report 19379796 (Version 1)
Quarter: 2021Q2

REPORT INFORMATION
  Report Type: Spontaneous
  Country: NL (occurrence: NL)
  Receive Date: 20210607
  Receipt Date: 20210607
  Transmission Date: 20210717
  Serious: Yes (Hospitalization)
  Sender: FDA-Public Use
  Company Number: NL-SUN PHARMACEUTICAL INDUSTRIES LTD-2021RR-299522

PATIENT
  Sex: Male
  Weight: 95 kg

DRUGS (1)
  1. ALFUZOSIN [Suspect]
     Active Substance: ALFUZOSIN
     Indication: BENIGN PROSTATIC HYPERPLASIA
     Dosage: MODIFIED RELEASE TABLET, 10 MG (MILLIGRAMS),
     Route: 065
     Dates: start: 20201225, end: 20201226

REACTIONS (1)
  - Syncope [Unknown]
